FAERS Safety Report 8929178 (Version 1)
Quarter: 2012Q4

REPORT INFORMATION
  Report Type: Report from Study
  Country: US (occurrence: US)
  Receive Date: 20121127
  Receipt Date: 20121127
  Transmission Date: 20130627
  Serious: Yes (Hospitalization)
  Sender: FDA-Public Use
  Company Number: PHHO2012US016618

PATIENT
  Age: 65 Year
  Sex: Female
  Weight: 69.4 kg

DRUGS (5)
  1. LDE 225 [Suspect]
     Indication: ADENOCARCINOMA PANCREAS
     Dosage: 200 mg, UNK
     Route: 048
     Dates: start: 20121112, end: 20121119
  2. IRINOTECAN [Suspect]
     Indication: ADENOCARCINOMA PANCREAS
     Dosage: 120 mg/m2, UNK
     Dates: start: 20121112, end: 20121112
  3. FLUOROURACIL [Suspect]
     Indication: ADENOCARCINOMA PANCREAS
     Dosage: 1000 UNK, UNK
     Dates: start: 20121112, end: 20121112
  4. OXALIPLATIN [Suspect]
     Indication: ADENOCARCINOMA PANCREAS
     Dosage: 65 mg/m2, UNK
     Dates: start: 20121112, end: 20121112
  5. LEUCOVORIN [Suspect]
     Dosage: 400 mg/m2, UNK
     Dates: start: 20121112, end: 20121112

REACTIONS (4)
  - Alanine aminotransferase increased [Not Recovered/Not Resolved]
  - Aspartate aminotransferase increased [Not Recovered/Not Resolved]
  - Fatigue [Not Recovered/Not Resolved]
  - Nausea [Not Recovered/Not Resolved]
